FAERS Safety Report 7422908-5 (Version None)
Quarter: 2011Q2

REPORT INFORMATION
  Report Type: 
  Country: None (occurrence: None)
  Receive Date: 20110419
  Receipt Date: 20110414
  Transmission Date: 20111010
  Serious: Yes (Other)
  Sender: FDA-Public Use
  Company Number: DE-SANOFI-AVENTIS-2011SA022715

PATIENT
  Age: 60 Year
  Sex: Female

DRUGS (2)
  1. LASIX [Suspect]
     Route: 048
     Dates: start: 20110101
  2. SPIRONOLACTONE [Concomitant]

REACTIONS (6)
  - DYSPNOEA [None]
  - BLOOD URINE PRESENT [None]
  - DRUG INEFFECTIVE [None]
  - CARDIOVASCULAR DISORDER [None]
  - PARALYSIS [None]
  - RESTLESSNESS [None]
